FAERS Safety Report 5698049-4 (Version None)
Quarter: 2008Q2

REPORT INFORMATION
  Report Type: 
  Country: None (occurrence: None)
  Receive Date: 20080408
  Receipt Date: 20080328
  Transmission Date: 20081010
  Serious: Yes (Hospitalization, Other)
  Sender: FDA-Public Use
  Company Number: GB-ROCHE-545992

PATIENT
  Age: 12 Year
  Sex: Male

DRUGS (3)
  1. ISOTRETINOIN [Suspect]
     Indication: ACNE
     Route: 048
     Dates: start: 20070904, end: 20071001
  2. ISOTRETINOIN [Suspect]
     Route: 048
     Dates: start: 20071002, end: 20080124
  3. ISOTRETINOIN [Suspect]
     Dosage: DOSE WAS LOWERED
     Route: 048

REACTIONS (4)
  - ASTHENIA [None]
  - BLOOD CREATINE PHOSPHOKINASE INCREASED [None]
  - GAIT DISTURBANCE [None]
  - MYALGIA [None]
